FAERS Safety Report 9324884 (Version 2)
Quarter: 2015Q2

REPORT INFORMATION
  Report Type: Spontaneous
  Country: AU (occurrence: AU)
  Receive Date: 20130603
  Receipt Date: 20150416
  Transmission Date: 20150821
  Serious: Yes (Other)
  Sender: FDA-Public Use
  Company Number: PHHY2013AU054545

PATIENT
  Age: 30 Year
  Sex: Female

DRUGS (1)
  1. PROMETHAZINE [Suspect]
     Active Substance: PROMETHAZINE\PROMETHAZINE HYDROCHLORIDE
     Indication: INSOMNIA
     Route: 065

REACTIONS (15)
  - Restlessness [Unknown]
  - Drug abuse [Unknown]
  - Drug tolerance [Unknown]
  - Vision blurred [Unknown]
  - Concomitant disease aggravated [Unknown]
  - Drug withdrawal syndrome [Recovered/Resolved]
  - Anxiety [Recovering/Resolving]
  - Tremor [Recovered/Resolved]
  - Drug dependence [Recovered/Resolved]
  - Disturbance in attention [Unknown]
  - Intentional product misuse [Unknown]
  - Dependence [Recovered/Resolved]
  - Memory impairment [Unknown]
  - Dysphoria [Recovering/Resolving]
  - Overdose [Unknown]
